FAERS Safety Report 5804286-8 (Version None)
Quarter: 2008Q3

REPORT INFORMATION
  Report Type: 
  Country: None (occurrence: None)
  Receive Date: 20080709
  Receipt Date: 20080703
  Transmission Date: 20090109
  Serious: Yes (Hospitalization)
  Sender: FDA-Public Use
  Company Number: JP-BRISTOL-MYERS SQUIBB COMPANY-14251565

PATIENT
  Age: 71 Year
  Sex: Female

DRUGS (10)
  1. TAXOL [Suspect]
     Indication: BREAST CANCER
     Dosage: INITIATED ON: 27-SEP-2007 MOST RECENT INFUSION: 19-JUN-2008 - DAY15 OF CYC 10
     Route: 042
     Dates: start: 20080619, end: 20080619
  2. AVASTIN [Suspect]
     Indication: BREAST CANCER
     Dosage: INITIATED ON: 27-SEP-2007 MOST RECENT INFUSION: 19-JUN-2008 (DAY15 OF CYC 10)
     Route: 042
     Dates: start: 20080619, end: 20080619
  3. RILMAZAFONE HCL [Concomitant]
  4. GLIMEPIRIDE [Concomitant]
  5. LOXOPROFEN SODIUM [Concomitant]
  6. REBAMIPIDE [Concomitant]
  7. MAGNESIUM HYDROXIDE TAB [Concomitant]
  8. L-CARBOCISTEINE [Concomitant]
  9. EPRAZINONE HCL [Concomitant]
  10. IODINE [Concomitant]

REACTIONS (1)
  - CATARACT [None]
